FAERS Safety Report 22394168 (Version 1)
Quarter: 2023Q2

REPORT INFORMATION
  Report Type: Spontaneous
  Country: US (occurrence: None)
  Receive Date: 20230531
  Receipt Date: 20230531
  Transmission Date: 20230722
  Serious: Yes (Hospitalization)
  Sender: FDA-Public Use
  Company Number: None

PATIENT
  Age: 11 Year
  Sex: Male
  Weight: 30 kg

DRUGS (1)
  1. GAMUNEX [Suspect]
     Active Substance: HUMAN IMMUNOGLOBULIN G

REACTIONS (22)
  - Acute chest syndrome [None]
  - Tachycardia [None]
  - Lung infiltration [None]
  - Pulmonary embolism [None]
  - Pleural effusion [None]
  - Pulmonary thrombosis [None]
  - Deep vein thrombosis [None]
  - Pain [None]
  - Leukocytosis [None]
  - Thrombocytopenia [None]
  - Sickle cell anaemia with crisis [None]
  - Pain in extremity [None]
  - Back pain [None]
  - Headache [None]
  - Haemoglobin decreased [None]
  - Blood lactate dehydrogenase increased [None]
  - Splenomegaly [None]
  - Lung opacity [None]
  - Hypersplenism [None]
  - Bone infarction [None]
  - Pneumonia [None]
  - Atelectasis [None]

NARRATIVE: CASE EVENT DATE: 20230525
